FAERS Safety Report 9224105 (Version 1)
Quarter: 2013Q1

REPORT INFORMATION
  Report Type: Spontaneous
  Country: US (occurrence: None)
  Receive Date: 20120912
  Receipt Date: 20120912
  Transmission Date: 20140127
  Serious: Yes (Other)
  Sender: FDA-Public Use
  Company Number: 217594

PATIENT
  Sex: Female

DRUGS (9)
  1. INNOHEP (TINZAPARIN SODIUM) [Suspect]
     Route: 058
  2. INNOHEP (TINZAPARIN SODIUM) [Suspect]
     Indication: PULMONARY EMBOLISM
     Route: 058
  3. INNOHEP (TINZAPARIN SODIUM) [Suspect]
     Indication: HYPERCOAGULATION
     Route: 058
  4. HEPARIN (HEPARIN) [Suspect]
     Indication: DEEP VEIN THROMBOSIS
     Route: 042
  5. HEPARIN (HEPARIN) [Suspect]
     Indication: PULMONARY EMBOLISM
     Route: 042
  6. HEPARIN (HEPARIN) [Suspect]
     Indication: HYPERCOAGULATION
     Route: 042
  7. HEPARIN (HEPARIN) [Suspect]
     Route: 058
  8. HEPARIN (HEPARIN) [Suspect]
     Indication: PULMONARY EMBOLISM
     Route: 058
  9. HEPARIN (HEPARIN) [Suspect]
     Indication: HYPERCOAGULATION
     Route: 058

REACTIONS (5)
  - Embolism venous [None]
  - Intra-abdominal haemorrhage [None]
  - Wound haematoma [None]
  - Exposure during pregnancy [None]
  - Off label use [None]
